FAERS Safety Report 6622161-6 (Version None)
Quarter: 2010Q1

REPORT INFORMATION
  Report Type: 
  Country: None (occurrence: None)
  Receive Date: 20100303
  Receipt Date: 20100223
  Transmission Date: 20100710
  Serious: Yes (Death)
  Sender: FDA-Public Use
  Company Number: 2010AC000136

PATIENT

DRUGS (2)
  1. DIGOXIN [Suspect]
     Dosage: PO
     Route: 048
     Dates: start: 20071106
  2. DIGOXIN [Suspect]
     Dosage: PO
     Route: 048
     Dates: start: 20080613

REACTIONS (1)
  - MULTIPLE INJURIES [None]
